FAERS Safety Report 8243124-3 (Version None)
Quarter: 2012Q1

REPORT INFORMATION
  Report Type: 
  Country: None (occurrence: None)
  Receive Date: 20120314
  Receipt Date: 20100824
  Transmission Date: 20120608
  Serious: Yes (Other)
  Sender: FDA-Public Use
  Company Number: PHHY2010US49940

PATIENT
  Age: 45 Year
  Sex: Male
  Weight: 95.2 kg

DRUGS (8)
  1. EFFEXOR XR [Concomitant]
  2. FANAPT [Suspect]
     Indication: BIPOLAR I DISORDER
     Dosage: 1 MG, 2 MG, 4 MG, 6 MG, 8 MG, BID, ORAL
     Route: 048
     Dates: start: 20100710, end: 20100712
  3. FANAPT [Suspect]
     Indication: BIPOLAR I DISORDER
     Dosage: 1 MG, 2 MG, 4 MG, 6 MG, 8 MG, BID, ORAL
     Route: 048
     Dates: start: 20100630
  4. FANAPT [Suspect]
     Indication: BIPOLAR I DISORDER
     Dosage: 1 MG, 2 MG, 4 MG, 6 MG, 8 MG, BID, ORAL
     Route: 048
     Dates: start: 20100702
  5. FANAPT [Suspect]
     Indication: BIPOLAR I DISORDER
     Dosage: 1 MG, 2 MG, 4 MG, 6 MG, 8 MG, BID, ORAL
     Route: 048
     Dates: start: 20100703, end: 20100709
  6. FANAPT [Suspect]
     Indication: BIPOLAR I DISORDER
     Dosage: 1 MG, 2 MG, 4 MG, 6 MG, 8 MG, BID, ORAL
     Route: 048
     Dates: start: 20100701
  7. SEROQUEL [Concomitant]
  8. LAMICTAL [Concomitant]

REACTIONS (1)
  - PRIAPISM [None]
